FAERS Safety Report 10749267 (Version 1)
Quarter: 2015Q1

REPORT INFORMATION
  Report Type: Spontaneous
  Country: US (occurrence: US)
  Receive Date: 20150129
  Receipt Date: 20150129
  Transmission Date: 20150721
  Serious: No
  Sender: FDA-Public Use
  Company Number: US-PFIZER INC-2015032235

PATIENT
  Sex: Female

DRUGS (1)
  1. LYRICA [Suspect]
     Active Substance: PREGABALIN
     Dosage: 75 MG, 1X/DAY (TAKES AT NIGHT )

REACTIONS (5)
  - Somnolence [Unknown]
  - Depressed mood [Unknown]
  - Agitation [Unknown]
  - Dizziness [Unknown]
  - Apathy [Unknown]
